FAERS Safety Report 9420248 (Version 1)
Quarter: 2013Q3

REPORT INFORMATION
  Report Type: Spontaneous
  Country: US (occurrence: US)
  Receive Date: 20130725
  Receipt Date: 20130725
  Transmission Date: 20140515
  Serious: No
  Sender: FDA-Public Use
  Company Number: US-PFIZER INC-2013215145

PATIENT
  Sex: 0

DRUGS (2)
  1. DICLOFENAC SODIUM\MISOPROSTOL [Suspect]
     Indication: PAIN
     Dosage: UNK
  2. DICLOFENAC SODIUM\MISOPROSTOL [Suspect]
     Indication: DISCOMFORT

REACTIONS (1)
  - Drug effect incomplete [Unknown]
